FAERS Safety Report 6142471-9 (Version None)
Quarter: 2009Q2

REPORT INFORMATION
  Report Type: 
  Country: None (occurrence: None)
  Receive Date: 20090403
  Receipt Date: 20090325
  Transmission Date: 20091009
  Serious: Yes (Hospitalization)
  Sender: FDA-Public Use
  Company Number: BE-BRISTOL-MYERS SQUIBB COMPANY-13849831

PATIENT
  Age: 27 Year
  Sex: Female

DRUGS (1)
  1. PLACEBO (ABATACEPT) [Suspect]
     Indication: CROHN'S DISEASE
     Route: 042
     Dates: start: 20070712

REACTIONS (1)
  - INFLUENZA LIKE ILLNESS [None]
